FAERS Safety Report 9642909 (Version 4)
Quarter: 2013Q4

REPORT INFORMATION
  Report Type: Report from Study
  Country: AU (occurrence: AU)
  Receive Date: 20131024
  Receipt Date: 20131122
  Transmission Date: 20140711
  Serious: Yes (Death, Hospitalization, Other)
  Sender: FDA-Public Use
  Company Number: PHHY2013AU119354

PATIENT
  Age: 67 Year
  Sex: Female
  Weight: 45.7 kg

DRUGS (10)
  1. ACLASTA [Suspect]
     Dosage: 5 MG, UNK
     Route: 042
     Dates: start: 20100924
  2. ACLASTA [Suspect]
     Dosage: 5 MG, UNK
     Route: 042
     Dates: start: 20111006
  3. ACLASTA [Suspect]
     Dosage: 5 MG, UNK
     Route: 042
     Dates: start: 20121108
  4. DIGESIC [Concomitant]
     Dosage: 1 TO 2 DF EVERY 04 HOURS AS REQUIRED
  5. EFEXOR XR [Concomitant]
     Dosage: 1 DF, DAILY ON ALTERNATE BASIS
  6. AUGMENTIN DUO FORTE [Concomitant]
     Dosage: UNK
     Route: 048
  7. ONBREZ BREEZHALER [Concomitant]
     Dosage: 150 UG, POWDER FOR INHALATION
  8. OSTELIN VITAMIN D [Concomitant]
     Dosage: 1 DF, DAILY
  9. AUGMENTIN [Concomitant]
     Dosage: UNK
     Route: 048
  10. THYROXINE [Concomitant]
     Dosage: 11.5 DF, ONCE A WEEK

REACTIONS (10)
  - Chronic obstructive pulmonary disease [Fatal]
  - Respiratory failure [Unknown]
  - Dyspnoea [Unknown]
  - Respiratory acidosis [Unknown]
  - Cardiac failure [Unknown]
  - Fall [Unknown]
  - General physical health deterioration [Unknown]
  - Interstitial lung disease [Unknown]
  - Hyponatraemia [Unknown]
  - Herpes zoster [Unknown]
